FAERS Safety Report 21264878 (Version 1)
Quarter: 2022Q3

REPORT INFORMATION
  Report Type: Spontaneous
  Country: US (occurrence: None)
  Receive Date: 20220827
  Receipt Date: 20220827
  Transmission Date: 20221027
  Serious: Yes (Hospitalization)
  Sender: FDA-Public Use
  Company Number: None

PATIENT
  Age: 39 Year
  Sex: Female
  Weight: 85.4 kg

DRUGS (2)
  1. RIFAPENTINE [Suspect]
     Active Substance: RIFAPENTINE
  2. methadone 91 mg - taper down 1 mg monthly [Concomitant]

REACTIONS (3)
  - Influenza like illness [None]
  - Withdrawal syndrome [None]
  - Drug interaction [None]

NARRATIVE: CASE EVENT DATE: 20220618
